FAERS Safety Report 4767814-X (Version None)
Quarter: 2005Q3

REPORT INFORMATION
  Report Type: 
  Country: None (occurrence: None)
  Receive Date: 20050912
  Receipt Date: 20050901
  Transmission Date: 20060218
  Serious: Yes (Death, Life-Threatening, Hospitalization)
  Sender: FDA-Public Use
  Company Number: FRWYE910616AUG05

PATIENT
  Age: 84 Year
  Sex: Male

DRUGS (5)
  1. EFFEXOR [Suspect]
     Dosage: ORAL
     Route: 048
     Dates: start: 20050701, end: 20050713
  2. BACTRIM [Suspect]
     Indication: URINARY TRACT INFECTION
     Dates: start: 20050707, end: 20050712
  3. CLONIDINE [Concomitant]
  4. CORDARONE [Concomitant]
  5. AMLODIPINE BESYLATE [Concomitant]

REACTIONS (11)
  - BRONCHIAL OBSTRUCTION [None]
  - CYTOLYTIC HEPATITIS [None]
  - DERMATITIS BULLOUS [None]
  - HYPERKALAEMIA [None]
  - INCREASED BRONCHIAL SECRETION [None]
  - OXYGEN SATURATION DECREASED [None]
  - RENAL FAILURE ACUTE [None]
  - SEPSIS [None]
  - STEVENS-JOHNSON SYNDROME [None]
  - TOXIC EPIDERMAL NECROLYSIS [None]
  - URINARY TRACT INFECTION [None]
